FAERS Safety Report 21606226 (Version 2)
Quarter: 2022Q4

REPORT INFORMATION
  Report Type: Spontaneous
  Country: JP (occurrence: JP)
  Receive Date: 20221117
  Receipt Date: 20221202
  Transmission Date: 20230113
  Serious: Yes (Death, Hospitalization)
  Sender: FDA-Public Use
  Company Number: JP-DSJP-DSJ-2022-140939

PATIENT
  Age: 8 Decade
  Sex: Male

DRUGS (20)
  1. DENOSUMAB [Suspect]
     Active Substance: DENOSUMAB
     Indication: Metastases to bone
     Dosage: 120 MILLIGRAM, QD
     Route: 058
     Dates: start: 20221006, end: 20221006
  2. CARBOHYDRATES\FATTY ACIDS\MINERALS\PROTEIN\VITAMINS [Concomitant]
     Active Substance: CARBOHYDRATES\FATTY ACIDS\MINERALS\PROTEIN\VITAMINS
     Indication: Feeding disorder
     Dosage: 250 ML, QD
     Route: 048
     Dates: end: 20221031
  3. VOLTAREN [Concomitant]
     Active Substance: DICLOFENAC SODIUM
     Dosage: UNK
     Route: 065
  4. MAGNESIUM OXIDE [Concomitant]
     Active Substance: MAGNESIUM OXIDE
     Indication: Constipation
     Dosage: 330 MG, TID
     Route: 048
     Dates: start: 20160121, end: 20221024
  5. PYRIDOXAL [Concomitant]
     Active Substance: PYRIDOXAL
     Indication: Chemotherapy side effect prophylaxis
     Dosage: 30 MG, TID
     Route: 048
  6. NEXIUM [Concomitant]
     Active Substance: ESOMEPRAZOLE MAGNESIUM
     Indication: Cerebral infarction
     Dosage: 20 MG, QD, MORNING
     Route: 048
     Dates: start: 20220127, end: 20221024
  7. VALSARTAN [Concomitant]
     Active Substance: VALSARTAN
     Indication: Hypertension
     Dosage: 40 MG, QD, MORNING
     Route: 048
     Dates: start: 20150423, end: 20221024
  8. FEBUXOSTAT [Concomitant]
     Active Substance: FEBUXOSTAT
     Indication: Hyperuricaemia
     Dosage: 10 MG, QD, MORNING
     Route: 048
     Dates: start: 20220512, end: 20221024
  9. ASPIRIN [Concomitant]
     Active Substance: ASPIRIN
     Indication: Cerebral infarction
     Dosage: 100 MG, QD, MORNING
     Route: 048
     Dates: start: 20220127, end: 20221024
  10. DOMPERIDONE [Concomitant]
     Active Substance: DOMPERIDONE
     Indication: Nausea
     Dosage: 10 MG, AS NEEDED (AT QUEASY)
     Route: 048
     Dates: end: 20221024
  11. OXYCODONE HYDROCHLORIDE [Concomitant]
     Active Substance: OXYCODONE HYDROCHLORIDE
     Indication: Metastases to bone
     Dosage: 10 MG, BID
     Route: 048
     Dates: start: 20220929, end: 20221024
  12. OXYCODONE HYDROCHLORIDE [Concomitant]
     Active Substance: OXYCODONE HYDROCHLORIDE
     Indication: Colon cancer
     Dosage: UNK
  13. Oxinorm [Concomitant]
     Indication: Metastases to bone
     Dosage: 2.5 MG, AS NEEDED
     Route: 048
     Dates: start: 20220929, end: 20221024
  14. Oxinorm [Concomitant]
     Indication: Colon cancer
     Dosage: UNK
  15. AVASTIN [Concomitant]
     Active Substance: BEVACIZUMAB
     Indication: Colon cancer
     Dosage: 390 MILLIGRAM
     Route: 042
     Dates: start: 20220928
  16. AVASTIN [Concomitant]
     Active Substance: BEVACIZUMAB
     Dosage: 390 MG
     Route: 042
  17. OXALIPLATIN [Concomitant]
     Active Substance: OXALIPLATIN
     Indication: Colon cancer
     Dosage: 150 MG
     Route: 042
     Dates: start: 20220928
  18. OXALIPLATIN [Concomitant]
     Active Substance: OXALIPLATIN
     Dosage: 150 MG
     Route: 042
  19. XELODA [Concomitant]
     Active Substance: CAPECITABINE
     Indication: Colon cancer
     Dosage: 1200 MG, BID
     Route: 048
     Dates: start: 20220928
  20. XELODA [Concomitant]
     Active Substance: CAPECITABINE
     Dosage: 1200 MG, BID
     Route: 048

REACTIONS (2)
  - Hypocalcaemia [Fatal]
  - Pyrexia [Unknown]

NARRATIVE: CASE EVENT DATE: 20221104
